FAERS Safety Report 4624998-1 (Version None)
Quarter: 2005Q2

REPORT INFORMATION
  Report Type: 
  Country: None (occurrence: None)
  Receive Date: 20050401
  Receipt Date: 20050322
  Transmission Date: 20051028
  Serious: Yes (Other)
  Sender: FDA-Public Use
  Company Number: DE-JNJFOC-20050300720

PATIENT
  Sex: Female
  Weight: 60 kg

DRUGS (3)
  1. REMINYL [Suspect]
     Route: 049
  2. REMINYL [Suspect]
     Indication: DEMENTIA ALZHEIMER'S TYPE
     Route: 049
  3. DELIX 5 [Interacting]
     Route: 049

REACTIONS (2)
  - DRUG INTERACTION [None]
  - FALL [None]
